FAERS Safety Report 17605439 (Version 1)
Quarter: 2020Q1

REPORT INFORMATION
  Report Type: Spontaneous
  Country: US (occurrence: US)
  Receive Date: 20200331
  Receipt Date: 20200331
  Transmission Date: 20200409
  Serious: Yes (Life-Threatening)
  Sender: FDA-Public Use
  Company Number: None

PATIENT
  Age: 85 Year
  Sex: Male
  Weight: 84 kg

DRUGS (2)
  1. PLAQUENIL [Suspect]
     Active Substance: HYDROXYCHLOROQUINE SULFATE
     Indication: CORONA VIRUS INFECTION
     Dosage: ?          OTHER FREQUENCY:LOAD - THEN 200MG;?
     Route: 048
     Dates: start: 20200324, end: 20200331
  2. AZITHROMYCIN ANHYDROUS. [Concomitant]
     Active Substance: AZITHROMYCIN ANHYDROUS
     Dates: start: 20200324, end: 20200328

REACTIONS (2)
  - Tachycardia [None]
  - Drug interaction [None]

NARRATIVE: CASE EVENT DATE: 20200331
